FAERS Safety Report 6297867-1 (Version None)
Quarter: 2009Q3

REPORT INFORMATION
  Report Type: 
  Country: None (occurrence: None)
  Receive Date: 20090804
  Receipt Date: 20090804
  Transmission Date: 20100115
  Serious: Yes (Life-Threatening, Hospitalization, Other)
  Sender: FDA-Public Use
  Company Number: None

PATIENT
  Age: 51 Year
  Sex: Female
  Weight: 62.5964 kg

DRUGS (11)
  1. PRAVASTATIN [Suspect]
     Indication: BLOOD CHOLESTEROL INCREASED
     Dosage: 1 TABLET, ONCE A DAY, PO
     Route: 048
     Dates: start: 20041202, end: 20090729
  2. PREMPRO [Concomitant]
  3. ESTROGEN [Concomitant]
  4. PROGESTERONE [Concomitant]
  5. CARISOPRODOL [Concomitant]
  6. MIRTAZAPINE [Concomitant]
  7. TRAZODONE [Concomitant]
  8. HYDROCODONE AND IBUPROFEN [Concomitant]
  9. LEVOTHYROXINE SODIUM [Concomitant]
  10. COMBIVENT [Concomitant]
  11. ADVAIR DISKUS 100/50 [Concomitant]

REACTIONS (10)
  - AMNESIA [None]
  - BACK PAIN [None]
  - FATIGUE [None]
  - FEELING ABNORMAL [None]
  - INFLUENZA LIKE ILLNESS [None]
  - MALAISE [None]
  - MUSCLE ATROPHY [None]
  - MUSCLE SPASMS [None]
  - MYALGIA [None]
  - RENAL PAIN [None]
